FAERS Safety Report 10024058 (Version 2)
Quarter: 2014Q1

REPORT INFORMATION
  Report Type: Spontaneous
  Country: SE (occurrence: SE)
  Receive Date: 20140320
  Receipt Date: 20140320
  Transmission Date: 20141002
  Serious: Yes (Hospitalization, Other)
  Sender: FDA-Public Use
  Company Number: SE-PFIZER INC-2014075242

PATIENT
  Age: 45 Year
  Sex: Male

DRUGS (6)
  1. SULFASALAZINE [Suspect]
     Indication: COLITIS ULCERATIVE
     Dosage: 4 G, UNK
  2. SULFASALAZINE [Suspect]
     Indication: DIARRHOEA HAEMORRHAGIC
  3. PREDNISOLONE [Concomitant]
     Indication: COLITIS ULCERATIVE
     Dosage: 30 MG, DAILY
  4. PREDNISOLONE [Concomitant]
     Dosage: 40 MG, DAILY
  5. PREDNISOLONE [Concomitant]
     Dosage: GRADUALLY REDUCED
  6. PREDNISOLONE [Concomitant]
     Dosage: UNK
     Dates: end: 197804

REACTIONS (1)
  - Interstitial lung disease [Recovered/Resolved]
